FAERS Safety Report 4270437-2 (Version None)
Quarter: 2004Q1

REPORT INFORMATION
  Report Type: 
  Country: None (occurrence: None)
  Receive Date: 20040114
  Receipt Date: 20030604
  Transmission Date: 20041129
  Serious: Yes (Other)
  Sender: FDA-Public Use
  Company Number: US-GLAXOSMITHKLINE-A0411062A

PATIENT
  Age: 54 Year
  Sex: Female

DRUGS (4)
  1. IMITREX [Suspect]
     Indication: MIGRAINE
     Dosage: 25MG AS REQUIRED
     Route: 048
  2. CELEXA [Concomitant]
  3. QUININE [Concomitant]
  4. PROTONIX [Concomitant]

REACTIONS (3)
  - MUSCLE CRAMP [None]
  - PERNICIOUS ANAEMIA [None]
  - PERONEAL NERVE PALSY [None]
